FAERS Safety Report 10566801 (Version 1)
Quarter: 2014Q4

REPORT INFORMATION
  Report Type: Spontaneous
  Country: US (occurrence: US)
  Receive Date: 20141105
  Receipt Date: 20141105
  Transmission Date: 20150529
  Serious: Yes (Hospitalization)
  Sender: FDA-Public Use
  Company Number: US-009507513-1410USA016584

PATIENT
  Age: 56 Year
  Sex: Male

DRUGS (4)
  1. RITONAVIR. [Concomitant]
     Active Substance: RITONAVIR
  2. ISENTRESS [Suspect]
     Active Substance: RALTEGRAVIR POTASSIUM
     Indication: HIV INFECTION
     Dosage: 400 MG, BID
     Route: 048
  3. TRUVADA [Concomitant]
     Active Substance: EMTRICITABINE\TENOFOVIR DISOPROXIL FUMARATE
  4. REYATAZ [Concomitant]
     Active Substance: ATAZANAVIR SULFATE

REACTIONS (4)
  - Dysphagia [Recovering/Resolving]
  - Wrong technique in drug usage process [Unknown]
  - Nausea [Recovering/Resolving]
  - Vomiting [Recovering/Resolving]
